FAERS Safety Report 8984957 (Version 1)
Quarter: 2012Q4

REPORT INFORMATION
  Report Type: 
  Country: US (occurrence: US)
  Receive Date: 20121226
  Receipt Date: 20121226
  Transmission Date: 20130627
  Serious: No
  Sender: FDA-Public Use
  Company Number: US-PFIZER INC-2012323252

PATIENT
  Age: 19 Month
  Sex: Female
  Weight: 9 kg

DRUGS (2)
  1. INFANT ADVIL CONCENTRATED DROPS [Suspect]
     Indication: FEVER
     Dosage: UNK
     Dates: start: 2011
  2. INFANT ADVIL CONCENTRATED DROPS [Suspect]
     Dosage: UNK, daily
     Dates: start: 20121217

REACTIONS (1)
  - Hyperhidrosis [Not Recovered/Not Resolved]
